FAERS Safety Report 23683129 (Version 1)
Quarter: 2024Q1

REPORT INFORMATION
  Report Type: Other
  Country: US (occurrence: None)
  Receive Date: 20240328
  Receipt Date: 20240328
  Transmission Date: 20240410
  Serious: Yes (Other)
  Sender: FDA-Public Use
  Company Number: US-ROCHE-3525020

PATIENT
  Sex: Female

DRUGS (1)
  1. CELLCEPT [Suspect]
     Active Substance: MYCOPHENOLATE MOFETIL
     Indication: Renal transplant
     Dosage: MORE DOSAGE INFORMATION: 1BID
     Route: 065

REACTIONS (6)
  - Disability [Unknown]
  - Confusional state [Unknown]
  - Anxiety [Unknown]
  - Stress [Unknown]
  - Product dispensing error [Unknown]
  - Product dose omission issue [Unknown]
